FAERS Safety Report 26059745 (Version 2)
Quarter: 2025Q4

REPORT INFORMATION
  Report Type: Report from Study
  Country: CA (occurrence: CA)
  Receive Date: 20251118
  Receipt Date: 20251211
  Transmission Date: 20260117
  Serious: Yes (Death, Other)
  Sender: TAKEDA
  Company Number: CA-TAKEDA-2025TUS103459

PATIENT
  Sex: Male

DRUGS (1)
  1. FRUQUINTINIB [Suspect]
     Active Substance: FRUQUINTINIB
     Indication: Colorectal cancer metastatic
     Dosage: 5 MILLIGRAM, QD
     Dates: start: 20250821

REACTIONS (1)
  - Death [Fatal]

NARRATIVE: CASE EVENT DATE: 20251101
